FAERS Safety Report 5551262-9 (Version None)
Quarter: 2007Q4

REPORT INFORMATION
  Report Type: 
  Country: None (occurrence: None)
  Receive Date: 20071212
  Receipt Date: 20071128
  Transmission Date: 20080405
  Serious: Yes (Death, Life-Threatening, Hospitalization, Other)
  Sender: FDA-Public Use
  Company Number: DK-AMGEN-US250516

PATIENT
  Sex: Male

DRUGS (2)
  1. ENBREL [Suspect]
     Indication: PSORIASIS
     Route: 058
     Dates: start: 20050910, end: 20071001
  2. CYCLOSPORINE [Concomitant]
     Indication: PSORIASIS
     Dosage: 200-250 MG X 1
     Dates: start: 19980101, end: 20050101

REACTIONS (3)
  - ADENOCARCINOMA [None]
  - CARDIAC ARREST [None]
  - PERIPHERAL EMBOLISM [None]
